FAERS Safety Report 12649063 (Version 3)
Quarter: 2016Q3

REPORT INFORMATION
  Report Type: Spontaneous
  Country: JP (occurrence: JP)
  Receive Date: 20160812
  Receipt Date: 20160825
  Transmission Date: 20161109
  Serious: Yes (Hospitalization, Other)
  Sender: FDA-Public Use
  Company Number: JP-JNJFOC-20160705159

PATIENT
  Age: 9 Decade
  Sex: Female

DRUGS (1)
  1. TRAMCET [Suspect]
     Active Substance: ACETAMINOPHEN\TRAMADOL
     Indication: PAIN
     Dosage: 3 PER 1 DAY
     Route: 048
     Dates: start: 20160518, end: 20160519

REACTIONS (11)
  - Chest discomfort [Unknown]
  - Oesophageal discomfort [Unknown]
  - Abdominal pain [Unknown]
  - Dyspepsia [Unknown]
  - Pleural effusion [Recovering/Resolving]
  - Drug reaction with eosinophilia and systemic symptoms [Recovered/Resolved]
  - Pneumonia [Recovering/Resolving]
  - Melaena [Unknown]
  - Diarrhoea [Unknown]
  - Loss of consciousness [Unknown]
  - Chest pain [Unknown]

NARRATIVE: CASE EVENT DATE: 20160518
